FAERS Safety Report 6311676-6 (Version None)
Quarter: 2009Q3

REPORT INFORMATION
  Report Type: 
  Country: None (occurrence: None)
  Receive Date: 20090817
  Receipt Date: 20090807
  Transmission Date: 20100115
  Serious: Yes (Other)
  Sender: FDA-Public Use
  Company Number: BE-ASTRAZENECA-2009SE07236

PATIENT
  Age: 29244 Day
  Sex: Female
  Weight: 78 kg

DRUGS (7)
  1. ATACAND [Suspect]
     Indication: HYPERTENSION
     Route: 048
     Dates: start: 20090703
  2. ATACAND [Suspect]
     Route: 048
  3. TENORMIN [Concomitant]
  4. CRESTOR [Concomitant]
  5. ELTHYRONE [Concomitant]
     Dosage: 150 OF UNKNOWN UNIT
  6. FOSAVACANCE CALCIUM [Concomitant]
  7. OXYCONTIN [Concomitant]

REACTIONS (2)
  - DRUG INTOLERANCE [None]
  - RASH [None]
